FAERS Safety Report 12174755 (Version 1)
Quarter: 2016Q1

REPORT INFORMATION
  Report Type: Spontaneous
  Country: CN (occurrence: CN)
  Receive Date: 20160314
  Receipt Date: 20160314
  Transmission Date: 20160526
  Serious: Yes (Life-Threatening, Other)
  Sender: FDA-Public Use
  Company Number: CN-UCBSA-2016008795

PATIENT
  Age: 11 Year
  Sex: Male

DRUGS (4)
  1. KEPPRA [Suspect]
     Active Substance: LEVETIRACETAM
     Indication: EPILEPSY
     Dosage: 10 MG/KG, 2X/DAY (BID)
     Route: 048
     Dates: start: 20160128, end: 20160204
  2. GAMMA GLOBULIN [Concomitant]
     Active Substance: IMMUNE GLOBULIN NOS
     Indication: PRODUCT USED FOR UNKNOWN INDICATION
     Dosage: UNK
     Dates: start: 20160128
  3. KEPPRA [Suspect]
     Active Substance: LEVETIRACETAM
     Dosage: 30 MG/KG, 2X/DAY (BID)
     Route: 048
     Dates: start: 20160205, end: 20160205
  4. DIAZEPAM. [Concomitant]
     Active Substance: DIAZEPAM
     Indication: EPILEPSY
     Dosage: UNK
     Dates: start: 20160204

REACTIONS (2)
  - Respiratory failure [Unknown]
  - Seizure [Recovering/Resolving]

NARRATIVE: CASE EVENT DATE: 20160204
